FAERS Safety Report 12358449 (Version 1)
Quarter: 2016Q2

REPORT INFORMATION
  Report Type: Spontaneous
  Country: US (occurrence: None)
  Receive Date: 20160511
  Receipt Date: 20160511
  Transmission Date: 20160815
  Serious: Yes (Disabling)
  Sender: FDA-Public Use
  Company Number: None

PATIENT
  Age: 79 Year
  Sex: Female
  Weight: 78.02 kg

DRUGS (21)
  1. PRALUENT [Suspect]
     Active Substance: ALIROCUMAB
     Indication: CARDIOVASCULAR EVENT PROPHYLAXIS
     Dosage: 1 PRALUENT 75 MG PEN SEE PICTURE ENCLOSED 1 PEN EVERY 2 WEEKS 1 PM DAILY INJECTION
     Dates: start: 20151106, end: 20160104
  2. OMEGA 3 [Concomitant]
     Active Substance: OMEGA-3 FATTY ACIDS
  3. VITAMIN D3 [Concomitant]
     Active Substance: CHOLECALCIFEROL
  4. CRANBERRY JUICE [Concomitant]
     Active Substance: CRANBERRY JUICE
  5. LORATADINE. [Concomitant]
     Active Substance: LORATADINE
  6. DESOXIMETAZONE [Concomitant]
  7. DOC-O-LAX [Concomitant]
  8. GLUCOSAMINE HCL [Concomitant]
     Active Substance: GLUCOSAMINE
  9. ACTAMINO [Concomitant]
  10. CALCIUM W/VIT D3 [Concomitant]
  11. VITAMIN B12 [Concomitant]
     Active Substance: CYANOCOBALAMIN
  12. METAMUCIL [Concomitant]
     Active Substance: PLANTAGO SEED
  13. FIBRE [Concomitant]
  14. CRANBERRY. [Concomitant]
     Active Substance: CRANBERRY
  15. MSM [Concomitant]
     Active Substance: DIMETHYL SULFONE
  16. KETOCONAZOLE. [Concomitant]
     Active Substance: KETOCONAZOLE
  17. METOPROLOL TART [Concomitant]
     Active Substance: METOPROLOL TARTRATE
  18. FLAXSEED [Concomitant]
     Active Substance: FLAX SEED
  19. PROAIR HFA [Concomitant]
     Active Substance: ALBUTEROL SULFATE
  20. VITAMIN C [Concomitant]
     Active Substance: ASCORBIC ACID
  21. ARTIFICIAL TEARS [Concomitant]
     Active Substance: GLYCERIN\HYPROMELLOSES\POLYETHYLENE GLYCOL 400

REACTIONS (13)
  - Diplopia [None]
  - Hypoacusis [None]
  - Neuropathy peripheral [None]
  - Pain in extremity [None]
  - Visual impairment [None]
  - Macular opacity [None]
  - Balance disorder [None]
  - Accidental exposure to product [None]
  - Fall [None]
  - Fatigue [None]
  - Muscular weakness [None]
  - Chest discomfort [None]
  - Syringe issue [None]

NARRATIVE: CASE EVENT DATE: 20151106
